FAERS Safety Report 4931445-9 (Version None)
Quarter: 2006Q1

REPORT INFORMATION
  Report Type: 
  Country: None (occurrence: None)
  Receive Date: 20060228
  Receipt Date: 20060213
  Transmission Date: 20060701
  Serious: Yes (Hospitalization)
  Sender: FDA-Public Use
  Company Number: HP200600020

PATIENT
  Age: 29 Year
  Sex: Male

DRUGS (1)
  1. PANAFIL (PAPAIN, UREA, CHLOROPHYLLIN SODIUM COPPER COMPLEX) SPRAY [Suspect]
     Indication: DECUBITUS ULCER
     Dosage: SINGLE APPLICATION, TOPICAL
     Route: 061
     Dates: start: 20050801, end: 20050801

REACTIONS (2)
  - ANAPHYLACTIC REACTION [None]
  - RESPIRATORY ARREST [None]
